FAERS Safety Report 16982100 (Version 1)
Quarter: 2019Q4

REPORT INFORMATION
  Report Type: Spontaneous
  Country: FR (occurrence: FR)
  Receive Date: 20191101
  Receipt Date: 20191101
  Transmission Date: 20200122
  Serious: Yes (Life-Threatening, Hospitalization, Other)
  Sender: FDA-Public Use
  Company Number: FR-LUPIN PHARMACEUTICALS INC.-2019-06992

PATIENT
  Age: 72 Year
  Sex: Female

DRUGS (1)
  1. NITROFURANTOIN. [Suspect]
     Active Substance: NITROFURANTOIN
     Indication: URINARY TRACT INFECTION
     Dosage: UNK (20 DAYS A MONTH)
     Route: 065

REACTIONS (3)
  - Interstitial lung disease [Recovered/Resolved]
  - Hepatitis [Recovered/Resolved]
  - Toxicity to various agents [Unknown]
